FAERS Safety Report 9443672 (Version 1)
Quarter: 2013Q3

REPORT INFORMATION
  Report Type: Spontaneous
  Country: IT (occurrence: IT)
  Receive Date: 20130806
  Receipt Date: 20130806
  Transmission Date: 20140515
  Serious: Yes (Other)
  Sender: FDA-Public Use
  Company Number: PHHY2013IT078627

PATIENT
  Age: 52 Year
  Sex: Female
  Weight: 75 kg

DRUGS (10)
  1. PAROXETINE [Suspect]
     Dosage: 20 MG, UNK
  2. ZOLPIDEM [Suspect]
     Dosage: 10 MG, UNK
  3. TRIAZOLAM [Suspect]
     Dosage: 0.25 MG
  4. LORAZEPAM [Suspect]
     Indication: INSOMNIA
     Dosage: 2.5 MG
  5. FLURAZEPAM [Suspect]
     Indication: INSOMNIA
  6. TRAZODONE [Suspect]
     Indication: INSOMNIA
     Dosage: 150 MG
  7. MIRTAZAPINE [Suspect]
     Indication: INSOMNIA
     Dosage: 15-30 MG
  8. LEVOMEPROMAZINE [Suspect]
     Indication: INSOMNIA
     Dosage: 25 MG, UNK
  9. AGOMELATINE [Suspect]
     Indication: INSOMNIA
     Dosage: 50 MG, UNK
  10. ZUCLOPENTIXOL [Suspect]
     Indication: INSOMNIA
     Dosage: 25 MG, UNK

REACTIONS (9)
  - Orthostatic hypotension [Unknown]
  - Psychomotor hyperactivity [Unknown]
  - Impulsive behaviour [Unknown]
  - Hypotension [Unknown]
  - Ataxia [Unknown]
  - Insomnia [Unknown]
  - Asthenia [Unknown]
  - Depressive symptom [Unknown]
  - Drug ineffective [Unknown]
